FAERS Safety Report 7831820-9 (Version None)
Quarter: 2011Q4

REPORT INFORMATION
  Report Type: 
  Country: None (occurrence: None)
  Receive Date: 20111021
  Receipt Date: 20111010
  Transmission Date: 20120403
  Serious: Yes (Hospitalization, Other)
  Sender: FDA-Public Use
  Company Number: US-ELI_LILLY_AND_COMPANY-US201110003431

PATIENT
  Sex: Male

DRUGS (3)
  1. HUMALOG [Suspect]
     Indication: DIABETES MELLITUS
     Dosage: UNK UNK, PRN
  2. HUMALOG [Suspect]
     Dosage: UNK, PRN
     Dates: start: 20000101
  3. LANTUS [Concomitant]
     Dosage: UNK

REACTIONS (7)
  - BLOOD GLUCOSE INCREASED [None]
  - DRUG DOSE OMISSION [None]
  - HYPOGLYCAEMIC UNCONSCIOUSNESS [None]
  - BLOOD UREA DECREASED [None]
  - BLOOD CREATINE DECREASED [None]
  - RENAL FAILURE [None]
  - DIABETIC KETOACIDOSIS [None]
